FAERS Safety Report 22002293 (Version 1)
Quarter: 2023Q1

REPORT INFORMATION
  Report Type: Spontaneous
  Country: CN (occurrence: CN)
  Receive Date: 20230217
  Receipt Date: 20230217
  Transmission Date: 20230418
  Serious: Yes (Other)
  Sender: FDA-Public Use
  Company Number: CN-AMGEN-CHNSP2023023951

PATIENT
  Age: 10 Year
  Sex: Female

DRUGS (17)
  1. FILGRASTIM [Suspect]
     Active Substance: FILGRASTIM
     Indication: Prophylaxis
     Dosage: UNK
     Route: 065
  2. DAUNORUBICIN [Concomitant]
     Active Substance: DAUNORUBICIN
  3. CYTARABINE [Concomitant]
     Active Substance: CYTARABINE
  4. ETOPOSIDE [Concomitant]
     Active Substance: ETOPOSIDE
  5. IDARUBICIN [Concomitant]
     Active Substance: IDARUBICIN
  6. DECITABINE [Concomitant]
     Active Substance: DECITABINE
  7. CLADRIBINE [Concomitant]
     Active Substance: CLADRIBINE
  8. OMACETAXINE MEPESUCCINATE [Concomitant]
     Active Substance: OMACETAXINE MEPESUCCINATE
  9. CYCLOPHOSPHAMIDE [Concomitant]
     Active Substance: CYCLOPHOSPHAMIDE
  10. BUSULFAN [Concomitant]
     Active Substance: BUSULFAN
  11. CYCLOSPORINE [Concomitant]
     Active Substance: CYCLOSPORINE
  12. MYCOPHENOLATE MOFETIL [Concomitant]
     Active Substance: MYCOPHENOLATE MOFETIL
  13. SEMUSTINE [Concomitant]
     Active Substance: SEMUSTINE
  14. BASILIXIMAB [Concomitant]
     Active Substance: BASILIXIMAB
  15. METHOTREXATE [Concomitant]
     Active Substance: METHOTREXATE
  16. RUXOLITINIB [Concomitant]
     Active Substance: RUXOLITINIB
  17. METHYLPREDNISOLONE [Concomitant]
     Active Substance: METHYLPREDNISOLONE
     Dosage: 5 MILLIGRAM/KILOGRAM, QD

REACTIONS (6)
  - Haemophagocytic lymphohistiocytosis [Recovered/Resolved]
  - Graft versus host disease in skin [Recovering/Resolving]
  - Graft versus host disease in gastrointestinal tract [Recovering/Resolving]
  - Graft versus host disease in liver [Recovering/Resolving]
  - Acute myeloid leukaemia [Unknown]
  - Therapy partial responder [Unknown]

NARRATIVE: CASE EVENT DATE: 20210501
